FAERS Safety Report 17812466 (Version 1)
Quarter: 2020Q2

REPORT INFORMATION
  Report Type: Spontaneous
  Country: GB (occurrence: GB)
  Receive Date: 20200521
  Receipt Date: 20200521
  Transmission Date: 20200714
  Serious: Yes (Life-Threatening)
  Sender: FDA-Public Use
  Company Number: GB-PFIZER INC-2020198970

PATIENT
  Age: 81 Year
  Sex: Female
  Weight: 47.2 kg

DRUGS (6)
  1. HYDROXYCHLOROQUINE [Concomitant]
     Active Substance: HYDROXYCHLOROQUINE
     Dosage: UNK
  2. FOLIC ACID. [Concomitant]
     Active Substance: FOLIC ACID
     Dosage: UNK
  3. METHOTREXATE SODIUM. [Suspect]
     Active Substance: METHOTREXATE SODIUM
     Indication: RHEUMATOID ARTHRITIS
     Dosage: 40 MG, WEEKLY (PATIENT RECEIVED AT LEAST 3 X 40MG)
     Route: 048
     Dates: start: 20200327, end: 20200427
  4. FLUDROCORTISONE [Concomitant]
     Active Substance: FLUDROCORTISONE
     Dosage: UNK
     Dates: start: 20200327
  5. DONEPEZIL. [Concomitant]
     Active Substance: DONEPEZIL
     Dosage: UNK
  6. PARACETAMOL [Concomitant]
     Active Substance: ACETAMINOPHEN
     Dosage: UNK

REACTIONS (7)
  - Incorrect dose administered [Unknown]
  - Sepsis [Unknown]
  - Acute kidney injury [Unknown]
  - Pancytopenia [Not Recovered/Not Resolved]
  - Decreased activity [Unknown]
  - Oliguria [Unknown]
  - Hypophagia [Unknown]
